FAERS Safety Report 7581551-8 (Version None)
Quarter: 2011Q2

REPORT INFORMATION
  Report Type: 
  Country: None (occurrence: None)
  Receive Date: 20110629
  Receipt Date: 20110622
  Transmission Date: 20111010
  Serious: Yes (Hospitalization)
  Sender: FDA-Public Use
  Company Number: PHHY2011US55907

PATIENT
  Sex: Female

DRUGS (2)
  1. TOBI [Suspect]
     Indication: PSEUDOMONAS INFECTION
  2. CIPROFLOXACIN HCL [Suspect]
     Indication: PSEUDOMONAS INFECTION
     Route: 048

REACTIONS (7)
  - DYSPNOEA [None]
  - FEELING COLD [None]
  - CHRONIC OBSTRUCTIVE PULMONARY DISEASE [None]
  - FEELING HOT [None]
  - DYSPNOEA EXERTIONAL [None]
  - PRODUCTIVE COUGH [None]
  - CHRONIC RESPIRATORY FAILURE [None]
